FAERS Safety Report 5307849-1 (Version None)
Quarter: 2007Q2

REPORT INFORMATION
  Report Type: 
  Country: None (occurrence: None)
  Receive Date: 20070419
  Receipt Date: 20070409
  Transmission Date: 20071010
  Serious: Yes (Hospitalization)
  Sender: FDA-Public Use
  Company Number: 2006PV026607

PATIENT
  Age: 70 Year
  Sex: Female
  Weight: 117.9352 kg

DRUGS (14)
  1. BYETTA [Suspect]
     Indication: DIABETES MELLITUS NON-INSULIN-DEPENDENT
     Dosage: 10 MCG; 5 MCG: BID;SC
     Route: 058
     Dates: start: 20060131, end: 20060201
  2. BYETTA [Suspect]
     Indication: DIABETES MELLITUS NON-INSULIN-DEPENDENT
     Dosage: 10 MCG; 5 MCG: BID;SC
     Route: 058
     Dates: start: 20060201
  3. HUMALOG [Concomitant]
  4. LANTUS [Concomitant]
  5. PREDNISONE [Concomitant]
  6. STEROID INJECTION [Concomitant]
  7. DEMEROL [Concomitant]
  8. FE-SOY [Concomitant]
  9. PREVACID [Concomitant]
  10. LIPITOR [Concomitant]
  11. LOPRESSOR [Concomitant]
  12. LASIX [Concomitant]
  13. POTASSIUM CHLORIDE [Concomitant]
  14. REGLAN [Concomitant]

REACTIONS (9)
  - ABASIA [None]
  - BACK PAIN [None]
  - BLOOD GLUCOSE INCREASED [None]
  - DECREASED APPETITE [None]
  - DIARRHOEA [None]
  - INTERVERTEBRAL DISC PROTRUSION [None]
  - NASOPHARYNGITIS [None]
  - NAUSEA [None]
  - WEIGHT DECREASED [None]
